FAERS Safety Report 6128643-8 (Version None)
Quarter: 2009Q1

REPORT INFORMATION
  Report Type: 
  Country: None (occurrence: None)
  Receive Date: 20090319
  Receipt Date: 20090306
  Transmission Date: 20090719
  Serious: Yes (Death, Hospitalization)
  Sender: FDA-Public Use
  Company Number: GXKR2009JP01814

PATIENT
  Age: 72 Year
  Sex: Female
  Weight: 37.7 kg

DRUGS (3)
  1. THIAMAZOLE (NGX) (THIAMAZOLE) UNKNOWN [Suspect]
     Indication: BASEDOW'S DISEASE
  2. METHYLPREDNISOLONE 4MG TAB [Suspect]
     Indication: ANTI-NEUTROPHIL CYTOPLASMIC ANTIBODY POSITIVE VASCULITIS
     Dosage: 0.5 G/DAY
  3. PREDNISOLONE [Suspect]
     Indication: ANTI-NEUTROPHIL CYTOPLASMIC ANTIBODY POSITIVE VASCULITIS
     Dosage: 20 MG/DAY (0.6 MG/KG/DAY)

REACTIONS (17)
  - ANAEMIA [None]
  - ANOREXIA [None]
  - ANTI-NEUTROPHIL CYTOPLASMIC ANTIBODY POSITIVE VASCULITIS [None]
  - ASCITES [None]
  - AZOTAEMIA [None]
  - BENIGN PANCREATIC NEOPLASM [None]
  - GLOMERULONEPHRITIS MEMBRANOUS [None]
  - GLOMERULONEPHRITIS RAPIDLY PROGRESSIVE [None]
  - HAEMODIALYSIS [None]
  - MULTI-ORGAN FAILURE [None]
  - NAUSEA [None]
  - PANCREATIC NECROSIS [None]
  - PANCREATITIS ACUTE [None]
  - PLATELET COUNT DECREASED [None]
  - PROTEINURIA [None]
  - PULMONARY CONGESTION [None]
  - RENAL FAILURE CHRONIC [None]
